FAERS Safety Report 8227395-5 (Version None)
Quarter: 2012Q1

REPORT INFORMATION
  Report Type: 
  Country: None (occurrence: None)
  Receive Date: 20120322
  Receipt Date: 20120313
  Transmission Date: 20120608
  Serious: Yes (Hospitalization, Other)
  Sender: FDA-Public Use
  Company Number: US-BAYER-2011-109560

PATIENT
  Age: 71 Year
  Sex: Female

DRUGS (3)
  1. NEXAVAR [Suspect]
     Dosage: 400 MG, BID
     Route: 048
     Dates: start: 20111018
  2. NEXAVAR [Suspect]
     Dosage: 400 MG, UNK
     Route: 048
  3. NEXAVAR [Suspect]
     Indication: SOFT TISSUE NEOPLASM
     Dosage: 400 MG, BID
     Route: 048

REACTIONS (9)
  - DIPLOPIA [None]
  - MALAISE [None]
  - METASTASES TO LIVER [None]
  - UPPER LIMB FRACTURE [None]
  - LOSS OF CONSCIOUSNESS [None]
  - DEHYDRATION [None]
  - BRONCHITIS [None]
  - BLOOD PRESSURE INCREASED [None]
  - SOFT TISSUE NEOPLASM [None]
